FAERS Safety Report 7342972-1 (Version None)
Quarter: 2011Q1

REPORT INFORMATION
  Report Type: 
  Country: None (occurrence: None)
  Receive Date: 20110310
  Receipt Date: 20110224
  Transmission Date: 20110831
  Serious: Yes (Other)
  Sender: FDA-Public Use
  Company Number: PHHY2011CA15827

PATIENT
  Sex: Female

DRUGS (4)
  1. ADALAT [Concomitant]
     Dosage: 20 MG, QD
  2. NEXIUM [Concomitant]
     Dosage: 40 MG, BID
  3. ACLASTA [Suspect]
     Indication: OSTEOPOROSIS
     Dosage: 5 MG/100 ML/ YEAR
     Route: 042
     Dates: start: 20110223
  4. ENERGEX [Concomitant]

REACTIONS (6)
  - STRESS [None]
  - PAIN IN EXTREMITY [None]
  - MALAISE [None]
  - HEART RATE INCREASED [None]
  - GRIP STRENGTH DECREASED [None]
  - PYREXIA [None]
